FAERS Safety Report 24174149 (Version 5)
Quarter: 2024Q4

REPORT INFORMATION
  Report Type: Report from Study
  Country: US (occurrence: US)
  Receive Date: 20240805
  Receipt Date: 20241021
  Transmission Date: 20250114
  Serious: Yes (Other)
  Sender: PFIZER
  Company Number: US-PFIZER INC-202400197841

PATIENT
  Age: 56 Year
  Sex: Female
  Weight: 130.4 kg

DRUGS (35)
  1. TUKYSA [Suspect]
     Active Substance: TUCATINIB
     Indication: Breast cancer metastatic
     Dosage: 300 MG, 2X/DAY
     Route: 048
     Dates: start: 20240608, end: 20240702
  2. TUKYSA [Suspect]
     Active Substance: TUCATINIB
     Indication: Breast cancer female
     Dosage: 300 MG, 2X/DAY
     Route: 048
     Dates: start: 20240528
  3. TUKYSA [Suspect]
     Active Substance: TUCATINIB
     Dosage: 300 MG, 2X/DAY
     Route: 048
     Dates: start: 20240531
  4. TUKYSA [Suspect]
     Active Substance: TUCATINIB
     Dosage: 300 MG, 2X/DAY
     Route: 048
     Dates: start: 20240604
  5. TUKYSA [Suspect]
     Active Substance: TUCATINIB
     Dosage: 300 MG, 2X/DAY
     Route: 048
     Dates: start: 20240607
  6. TUKYSA [Suspect]
     Active Substance: TUCATINIB
     Dosage: 300 MG, 2X/DAY
     Route: 048
     Dates: start: 20240705
  7. TUKYSA [Suspect]
     Active Substance: TUCATINIB
     Dosage: 300 MG, 2X/DAY
     Route: 048
     Dates: start: 20240713
  8. TUKYSA [Suspect]
     Active Substance: TUCATINIB
     Dosage: 300 MG, 2X/DAY
     Route: 048
     Dates: start: 20240719
  9. TUKYSA [Suspect]
     Active Substance: TUCATINIB
     Dosage: 200 MG, 2X/DAY
     Route: 048
     Dates: start: 20240723
  10. TUKYSA [Suspect]
     Active Substance: TUCATINIB
     Dosage: 150 MG, 2X/DAY
     Route: 048
     Dates: start: 20240726
  11. TUKYSA [Suspect]
     Active Substance: TUCATINIB
     Dosage: 150 MG, 2X/DAY
     Route: 048
     Dates: start: 20240729
  12. TUKYSA [Suspect]
     Active Substance: TUCATINIB
     Dosage: 150 MG, 2X/DAY
     Route: 048
     Dates: start: 20240809
  13. CAPECITABINE [Concomitant]
     Active Substance: CAPECITABINE
     Indication: Breast cancer female
     Dosage: 4 TABLET 2X/DAY WITHIN 30 MINUTES AFTER FOOD, TAKE ON DAYS 1 TO 14, REPEAT EVERY 21 DAYS
     Dates: start: 20240528
  14. CAPECITABINE [Concomitant]
     Active Substance: CAPECITABINE
     Dosage: TAKE 4 TABLET 2X/DAY WITHIN 30 MINUTES AFTER FOOD, TAKE ON DAYS 1 TO 14, REPEAT EVERY 21 DAYS
     Dates: start: 20240531
  15. CAPECITABINE [Concomitant]
     Active Substance: CAPECITABINE
     Dosage: TAKE 4 TABLET 2X/DAY WITHIN 30 MINUTES AFTER FOOD, TAKE ON DAYS 1 TO 14, REPEAT EVERY 21 DAYS
     Dates: start: 20240613
  16. CAPECITABINE [Concomitant]
     Active Substance: CAPECITABINE
     Dosage: TAKE 3 TABLET 2X/DAY WITHIN 30 MINUTES AFTER FOOD, TAKE ON DAYS 1 TO 14, REPEAT EVERY 21 DAYS
     Route: 048
     Dates: start: 20240629
  17. CAPECITABINE [Concomitant]
     Active Substance: CAPECITABINE
     Dosage: TAKE 3 TABLET 2X/DAY WITHIN 30 MINUTES AFTER FOOD, TAKE ON DAYS 1 TO 14, REPEAT EVERY 21 DAYS
     Route: 048
     Dates: start: 20240702
  18. CAPECITABINE [Concomitant]
     Active Substance: CAPECITABINE
     Dosage: TAKE 3 TABLET 2X/DAY WITHIN 30 MINUTES AFTER FOOD, TAKE ON DAYS 1 TO 14, REPEAT EVERY 21 DAYS
     Route: 048
     Dates: start: 20240705
  19. CAPECITABINE [Concomitant]
     Active Substance: CAPECITABINE
     Dosage: TAKE 3 TABLET 2X/DAY WITHIN 30 MINUTES AFTER FOOD, TAKE ON DAYS 1 TO 14, REPEAT EVERY 21 DAYS
     Route: 048
     Dates: start: 20240726
  20. CAPECITABINE [Concomitant]
     Active Substance: CAPECITABINE
     Dosage: TAKE 3 TABLET 2X/DAY WITHIN 30 MINUTES AFTER FOOD, TAKE ON DAYS 1 TO 14, REPEAT EVERY 21 DAYS
     Route: 048
     Dates: start: 20240729
  21. CAPECITABINE [Concomitant]
     Active Substance: CAPECITABINE
     Dosage: TAKE 3 TABLET 2X/DAY WITHIN 30 MINUTES AFTER FOOD, TAKE ON DAYS 1 TO 14, REPEAT EVERY 21 DAYS
     Route: 048
     Dates: start: 20240731
  22. CAPECITABINE [Concomitant]
     Active Substance: CAPECITABINE
     Dosage: TAKE 3 TABLET 2X/DAY WITHIN 30 MINUTES AFTER FOOD, TAKE ON DAYS 1 TO 14, REPEAT EVERY 21 DAYS
     Route: 048
     Dates: start: 20240809
  23. ELIQUIS [Concomitant]
     Active Substance: APIXABAN
     Dosage: 2.5 MG, 2X/DAY
     Route: 048
     Dates: start: 20240522, end: 20240820
  24. IBUPROFEN [Concomitant]
     Active Substance: IBUPROFEN
     Dosage: EVERY 6 HOURS, AS NEEDED
     Route: 048
  25. KANJINTI [Concomitant]
     Active Substance: TRASTUZUMAB-ANNS
     Indication: Breast cancer female
     Dosage: 1050 MG (8 MG/KG), EVERY 21 DAYS
     Route: 042
     Dates: start: 20240531
  26. KANJINTI [Concomitant]
     Active Substance: TRASTUZUMAB-ANNS
     Dosage: 750 MG (6 MG/KG)
     Dates: start: 20240628
  27. KANJINTI [Concomitant]
     Active Substance: TRASTUZUMAB-ANNS
     Dosage: 750 MG (6 MG/KG)
     Dates: start: 20240719
  28. KANJINTI [Concomitant]
     Active Substance: TRASTUZUMAB-ANNS
     Dosage: 750 MG (6 MG/KG)
     Dates: start: 20240809
  29. VITAMINS [Concomitant]
     Active Substance: VITAMINS
     Dosage: 1 DF, DAILY
     Route: 048
  30. ONDANSETRON [Concomitant]
     Active Substance: ONDANSETRON
     Dosage: 8 MG, DAILY
     Route: 048
     Dates: start: 20240522, end: 20240719
  31. ZOLEDRONIC ACID [Concomitant]
     Active Substance: ZOLEDRONIC ACID
     Dosage: UNK
     Dates: start: 20240531
  32. ZOLEDRONIC ACID [Concomitant]
     Active Substance: ZOLEDRONIC ACID
     Dosage: UNK
     Dates: start: 20240628
  33. ZOLEDRONIC ACID [Concomitant]
     Active Substance: ZOLEDRONIC ACID
     Dosage: UNK
     Dates: start: 20240719
  34. ZOLEDRONIC ACID [Concomitant]
     Active Substance: ZOLEDRONIC ACID
     Dosage: UNK
     Dates: start: 20240719
  35. ZOLEDRONIC ACID [Concomitant]
     Active Substance: ZOLEDRONIC ACID
     Dosage: UNK
     Dates: start: 20240809

REACTIONS (31)
  - Clostridium difficile infection [Recovered/Resolved]
  - Arteriosclerosis coronary artery [Unknown]
  - Multiple fractures [Unknown]
  - Cytopenia [Not Recovered/Not Resolved]
  - Diarrhoea [Recovered/Resolved]
  - Gastrointestinal disorder [Recovered/Resolved]
  - Abdominal discomfort [Recovered/Resolved]
  - Peripheral swelling [Unknown]
  - Platelet count decreased [Not Recovered/Not Resolved]
  - Blood bilirubin increased [Recovered/Resolved with Sequelae]
  - Sensitive skin [Unknown]
  - Vomiting [Not Recovered/Not Resolved]
  - Muscle spasms [Unknown]
  - White blood cell count decreased [Recovered/Resolved]
  - Alanine aminotransferase increased [Recovering/Resolving]
  - Aspartate aminotransferase increased [Not Recovered/Not Resolved]
  - Haematocrit decreased [Not Recovered/Not Resolved]
  - Haemoglobin decreased [Recovered/Resolved]
  - Neutrophil count decreased [Recovered/Resolved]
  - Mean cell volume increased [Not Recovered/Not Resolved]
  - Mediastinal fibrosis [Unknown]
  - Diverticulum intestinal [Unknown]
  - Pain in extremity [Unknown]
  - Osteoarthritis [Unknown]
  - Cardiomegaly [Unknown]
  - Hiatus hernia [Unknown]
  - Diverticulum intestinal [Unknown]
  - Umbilical hernia [Unknown]
  - Osteosclerosis [Unknown]
  - Bone cyst [Unknown]
  - Exostosis [Unknown]

NARRATIVE: CASE EVENT DATE: 20240531
